FAERS Safety Report 20080428 (Version 1)
Quarter: 2021Q4

REPORT INFORMATION
  Report Type: Spontaneous
  Country: US (occurrence: US)
  Receive Date: 20211117
  Receipt Date: 20211117
  Transmission Date: 20220303
  Serious: Yes (Death, Other)
  Sender: FDA-Public Use
  Company Number: US-ASTELLAS-2021US042052

PATIENT
  Age: 76 Year
  Sex: Male

DRUGS (1)
  1. PADCEV [Suspect]
     Active Substance: ENFORTUMAB VEDOTIN-EJFV
     Indication: Bladder cancer
     Dosage: UNK UNK, UNKNOWN FREQ.
     Route: 065
     Dates: start: 202109, end: 20211101

REACTIONS (9)
  - Death [Fatal]
  - Somnolence [Unknown]
  - Fatigue [Unknown]
  - Bradykinesia [Unknown]
  - Slow speech [Unknown]
  - Back pain [Unknown]
  - Abdominal pain [Unknown]
  - Urinary tract infection [Unknown]
  - Feeling abnormal [Unknown]

NARRATIVE: CASE EVENT DATE: 20211101
